FAERS Safety Report 10156248 (Version 2)
Quarter: 2014Q2

REPORT INFORMATION
  Report Type: Spontaneous
  Country: BE (occurrence: BE)
  Receive Date: 20140507
  Receipt Date: 20140527
  Transmission Date: 20141212
  Serious: Yes (Death)
  Sender: FDA-Public Use
  Company Number: BE-BEH-2014042159

PATIENT
  Sex: Female

DRUGS (1)
  1. HIZENTRA [Suspect]
     Indication: DRUG THERAPY
     Dosage: DOSE, FREQUENCY AND STOP DATE: NOT MENTIONED, DATE OF LAST ADMINISTRATION: UNKNOWN
     Route: 058
     Dates: start: 20121008

REACTIONS (1)
  - Death [Fatal]
